FAERS Safety Report 8518583 (Version 3)
Quarter: 2013Q1

REPORT INFORMATION
  Report Type: Spontaneous
  Country: US (occurrence: US)
  Receive Date: 20120417
  Receipt Date: 20130227
  Transmission Date: 20140127
  Serious: No
  Sender: FDA-Public Use
  Company Number: US-ASTRAZENECA-2011SE32037

PATIENT
  Age: 70 Year
  Sex: Female

DRUGS (2)
  1. NEXIUM [Suspect]
     Route: 048
  2. VIMOVO [Suspect]
     Route: 048

REACTIONS (8)
  - Facial pain [Unknown]
  - Musculoskeletal pain [Unknown]
  - Neck pain [Unknown]
  - Irritability [Unknown]
  - Mood altered [Unknown]
  - Dyspepsia [Unknown]
  - Headache [Unknown]
  - Drug dose omission [Unknown]
